FAERS Safety Report 7878242-2 (Version None)
Quarter: 2011Q4

REPORT INFORMATION
  Report Type: 
  Country: None (occurrence: None)
  Receive Date: 20111028
  Receipt Date: 20111012
  Transmission Date: 20120403
  Serious: Yes (Hospitalization)
  Sender: FDA-Public Use
  Company Number: WAES 1110USA03448

PATIENT
  Age: 63 Year
  Sex: Male

DRUGS (3)
  1. DECADRON [Suspect]
     Indication: PRODUCT USED FOR UNKNOWN INDICATION
     Dosage: 4 MG/BID/PO
     Route: 048
     Dates: start: 20110831, end: 20110831
  2. MK-0752 [Concomitant]
  3. MK-0752 [Concomitant]

REACTIONS (5)
  - ESCHERICHIA SEPSIS [None]
  - ASCITES [None]
  - PULMONARY EMBOLISM [None]
  - BILIARY SEPSIS [None]
  - POST PROCEDURAL COMPLICATION [None]
